FAERS Safety Report 19427515 (Version 1)
Quarter: 2021Q2

REPORT INFORMATION
  Report Type: Report from Study
  Country: None (occurrence: CO)
  Receive Date: 20210617
  Receipt Date: 20210617
  Transmission Date: 20210717
  Serious: Yes (Disabling)
  Sender: FDA-Public Use
  Company Number: CO-ABBVIE-21K-036-3953907-00

PATIENT
  Age: 34 Year
  Sex: Female
  Weight: 75 kg

DRUGS (1)
  1. HUMIRA [Suspect]
     Active Substance: ADALIMUMAB
     Indication: HIDRADENITIS
     Route: 058
     Dates: start: 20200708, end: 20210607

REACTIONS (1)
  - Cough [Recovering/Resolving]

NARRATIVE: CASE EVENT DATE: 20210614
